FAERS Safety Report 8376568-X (Version None)
Quarter: 2012Q2

REPORT INFORMATION
  Report Type: 
  Country: None (occurrence: None)
  Receive Date: 20120522
  Receipt Date: 20120518
  Transmission Date: 20120825
  Serious: Yes (Other)
  Sender: FDA-Public Use
  Company Number: US-FRI-1000030285

PATIENT
  Age: 46 Year
  Sex: Male

DRUGS (2)
  1. TRAZODONE [Concomitant]
     Indication: INSOMNIA
  2. VIIBRYD [Suspect]
     Indication: DEPRESSION
     Dosage: 40 MG
     Route: 048
     Dates: start: 20120216, end: 20120301

REACTIONS (2)
  - SUICIDE ATTEMPT [None]
  - IRRITABLE BOWEL SYNDROME [None]
